FAERS Safety Report 5254577-7 (Version None)
Quarter: 2007Q1

REPORT INFORMATION
  Report Type: 
  Country: None (occurrence: None)
  Receive Date: 20070302
  Receipt Date: 20070223
  Transmission Date: 20070707
  Serious: Yes (Hospitalization)
  Sender: FDA-Public Use
  Company Number: US-MERCK-0702USA02939

PATIENT
  Age: 35 Year
  Sex: Female

DRUGS (2)
  1. JANUVIA [Suspect]
     Indication: DIABETES MELLITUS NON-INSULIN-DEPENDENT
     Route: 048
     Dates: start: 20070105, end: 20070212
  2. CIPRO [Concomitant]
     Route: 065
     Dates: start: 20070101, end: 20070101

REACTIONS (1)
  - DERMATITIS [None]
